FAERS Safety Report 20198036 (Version 1)
Quarter: 2021Q4

REPORT INFORMATION
  Report Type: Spontaneous
  Country: US (occurrence: US)
  Receive Date: 20211217
  Receipt Date: 20211217
  Transmission Date: 20220303
  Serious: No
  Sender: FDA-Public Use
  Company Number: US-ALLERGAN-2123896US

PATIENT
  Sex: Female

DRUGS (3)
  1. PREDNISOLONE ACETATE [Suspect]
     Active Substance: PREDNISOLONE ACETATE
     Indication: Eye allergy
     Dosage: 2 GTT, BID
     Route: 047
  2. UNSPECIFIED INGREDIENT [Concomitant]
     Active Substance: UNSPECIFIED INGREDIENT
     Indication: Thyroid disorder
  3. Unspecified OTC eye drops [Concomitant]

REACTIONS (2)
  - Off label use [Unknown]
  - Drug ineffective [Unknown]
